FAERS Safety Report 8558616-7 (Version None)
Quarter: 2012Q3

REPORT INFORMATION
  Report Type: 
  Country: None (occurrence: None)
  Receive Date: 20120801
  Receipt Date: 20120725
  Transmission Date: 20120928
  Serious: Yes (Hospitalization, Other)
  Sender: FDA-Public Use
  Company Number: JP-ROCHE-650882

PATIENT
  Sex: Male
  Weight: 55 kg

DRUGS (20)
  1. TACROLIMUS [Suspect]
     Indication: PRODUCT USED FOR UNKNOWN INDICATION
  2. CRESTOR [Concomitant]
     Indication: DYSLIPIDAEMIA
     Route: 048
  3. ZANTAC [Concomitant]
     Indication: GASTRITIS
     Route: 048
  4. ACTEMRA [Suspect]
     Route: 041
     Dates: start: 20090305, end: 20090305
  5. LASIX [Concomitant]
     Indication: HYPERTENSION
     Dosage: DOSEFORM: PERORAL AGENT.
     Route: 048
  6. LOXONIN [Concomitant]
     Indication: RHEUMATOID ARTHRITIS
     Dosage: DOSEFORM: PERORAL AGENT.
     Route: 048
  7. METHOTREXATE [Concomitant]
     Route: 048
  8. ALFAROL [Concomitant]
     Indication: OSTEOPOROSIS
     Dosage: DRUG: ALFAROL CAPSULES.
     Route: 048
  9. GLAKAY [Concomitant]
     Indication: OSTEOPOROSIS
     Route: 048
  10. ALENDRONATE SODIUM [Concomitant]
     Indication: OSTEOPOROSIS
     Dosage: DRUG REPORTED AS BONALON 5MG
     Route: 048
  11. FLIVAS [Concomitant]
     Indication: BENIGN PROSTATIC HYPERPLASIA
     Dosage: DRUG: FLIVAS OD.
     Route: 048
     Dates: start: 20090219, end: 20090304
  12. AMOBAN [Concomitant]
     Indication: INSOMNIA
     Route: 048
  13. TAMSULOSIN HCL [Concomitant]
     Indication: BENIGN PROSTATIC HYPERPLASIA
     Dosage: DRUG REPORTED AS HARNAL D
     Route: 048
  14. PREDNISOLONE [Suspect]
     Indication: RHEUMATOID ARTHRITIS
     Route: 048
  15. METHOTREXATE [Concomitant]
     Indication: RHEUMATOID ARTHRITIS
     Route: 048
  16. ISONIAZID [Concomitant]
     Indication: ANTIBIOTIC PROPHYLAXIS
     Dosage: DOSE FORM: PERORAL AGENT.
     Route: 048
  17. VITAMIN B12 [Concomitant]
     Indication: NEUROPATHY PERIPHERAL
     Dosage: DOSEFORM: PERORAL AGENT.
     Route: 048
  18. ACTEMRA [Suspect]
     Indication: RHEUMATOID ARTHRITIS
     Route: 041
     Dates: start: 20090205, end: 20090205
  19. FOLIC ACID [Concomitant]
     Indication: FOLATE DEFICIENCY
     Dosage: DOSEFORM: PERORAL AGENT.
     Route: 048
  20. ALLOPURINOL [Concomitant]
     Indication: HYPERURICAEMIA
     Route: 048

REACTIONS (10)
  - DISSEMINATED INTRAVASCULAR COAGULATION [None]
  - CHOLECYSTITIS ACUTE [None]
  - HAEMORRHAGE SUBCUTANEOUS [None]
  - SEPSIS [None]
  - GASTRIC ULCER [None]
  - CHOLECYSTITIS [None]
  - PYELONEPHRITIS [None]
  - HYDRONEPHROSIS [None]
  - SPINAL COMPRESSION FRACTURE [None]
  - PLATELET COUNT DECREASED [None]
